FAERS Safety Report 5209012-1 (Version None)
Quarter: 2007Q1

REPORT INFORMATION
  Report Type: 
  Country: None (occurrence: None)
  Receive Date: 20070116
  Receipt Date: 20070102
  Transmission Date: 20070707
  Serious: Yes (Hospitalization)
  Sender: FDA-Public Use
  Company Number: GB-MERCK-0701GBR00011

PATIENT
  Age: 54 Year
  Sex: Male

DRUGS (6)
  1. ZOCOR [Suspect]
     Route: 048
  2. ZOCOR [Suspect]
     Route: 048
  3. RANITIDINE [Suspect]
     Route: 048
  4. RANITIDINE [Suspect]
     Route: 048
  5. RAMIPRIL [Suspect]
     Route: 048
  6. RAMIPRIL [Suspect]
     Route: 048

REACTIONS (2)
  - HAEMODYNAMIC INSTABILITY [None]
  - OVERDOSE [None]
